FAERS Safety Report 9587956 (Version 1)
Quarter: 2013Q4

REPORT INFORMATION
  Report Type: Report from Study
  Country: TW (occurrence: TW)
  Receive Date: 20131003
  Receipt Date: 20131003
  Transmission Date: 20140711
  Serious: No
  Sender: FDA-Public Use
  Company Number: PHHY2012TW129397

PATIENT
  Age: 58 Year
  Sex: Male

DRUGS (11)
  1. AMN107 [Suspect]
     Dosage: 800 MG, UNK
     Dates: start: 20100728
  2. SULINDAC [Concomitant]
     Indication: GOUT
     Dosage: UNK
  3. ALLOPURINOL [Concomitant]
     Indication: GOUT
     Dosage: UNK
  4. CYPROHEPTADINE HCL [Concomitant]
     Indication: RASH
     Dosage: UNK
     Dates: end: 20100324
  5. PANADOL [Concomitant]
     Indication: UPPER RESPIRATORY TRACT INFECTION
     Dosage: UNK
     Dates: start: 20100920, end: 20101010
  6. AMOXYL [Concomitant]
     Indication: UPPER RESPIRATORY TRACT INFECTION
     Dosage: UNK
     Dates: start: 20100920, end: 20101010
  7. BECAME [Concomitant]
     Indication: UPPER RESPIRATORY TRACT INFECTION
     Dosage: UNK
     Dates: start: 20100920, end: 20101010
  8. MEDICON A [Concomitant]
     Indication: UPPER RESPIRATORY TRACT INFECTION
     Dosage: UNK
     Dates: start: 20100920, end: 20101010
  9. NOSCAPINE [Concomitant]
     Indication: UPPER RESPIRATORY TRACT INFECTION
     Dosage: UNK
     Dates: start: 20100920, end: 20101010
  10. PEPTIDINE [Concomitant]
     Indication: UPPER RESPIRATORY TRACT INFECTION
     Dosage: UNK
     Dates: start: 20100920, end: 20101010
  11. BORRAGINOL A [Concomitant]
     Indication: HAEMORRHOIDS
     Dosage: UNK
     Dates: start: 20100920, end: 20101015

REACTIONS (1)
  - Alanine aminotransferase increased [Unknown]
